FAERS Safety Report 20825766 (Version 1)
Quarter: 2022Q2

REPORT INFORMATION
  Report Type: Spontaneous
  Country: US (occurrence: US)
  Receive Date: 20220513
  Receipt Date: 20220513
  Transmission Date: 20220721
  Serious: Yes (Hospitalization)
  Sender: FDA-Public Use
  Company Number: US-MYLANLABS-2022M1035131

PATIENT
  Age: 2 Month
  Sex: Female

DRUGS (12)
  1. CYTARABINE [Suspect]
     Active Substance: CYTARABINE
     Indication: Acute myeloid leukaemia
     Dosage: UNK, BID (3.3 MG/KG/DOSE Q12H DAYS 1 TO 10; INDUCTION 1)
     Route: 065
  2. CYTARABINE [Suspect]
     Active Substance: CYTARABINE
     Indication: Central nervous system leukaemia
     Dosage: UNK, BID (INDUCTION II: HIGH-DOSE CYTARABINE 33 MG/KG/DOSE Q12H DAYS 1 TO 4)
     Route: 065
  3. CYTARABINE [Suspect]
     Active Substance: CYTARABINE
     Dosage: UNK, BID (INTENSIFICATION I: HIGH-DOSE CYTARABINE 33 MG/KG/DOSE Q12H DAYS 1 TO 5)
     Route: 065
  4. CYTARABINE [Suspect]
     Active Substance: CYTARABINE
     Indication: Acute myeloid leukaemia
     Dosage: 20 MILLIGRAM (ON DAY 1; INDUCTION 1 AND INDUCTION 2)
     Route: 037
  5. CYTARABINE [Suspect]
     Active Substance: CYTARABINE
     Indication: Central nervous system leukaemia
     Dosage: 20 MILLIGRAM (INTENSIFICATION I: INTRATHECAL CYTARABINE 20 MG DAY 1)
     Route: 037
  6. CYTARABINE [Suspect]
     Active Substance: CYTARABINE
     Dosage: UNK UNK, BIWEEKLY (TWICE WEEKLY CYTARABINE FOR 2 WEEKS, WITH CLEARANCE OF BLASTS)
     Route: 037
  7. ETOPOSIDE [Suspect]
     Active Substance: ETOPOSIDE
     Indication: Acute myeloid leukaemia
     Dosage: UNK, QD (3.3 MG/KG/DOSE DAILY DAYS 1 TO 5; INDUCTION 1)
     Route: 065
  8. ETOPOSIDE [Suspect]
     Active Substance: ETOPOSIDE
     Indication: Central nervous system leukaemia
     Dosage: UNK, QD (INTENSIFICATION I: ETOPOSIDE 5 MG/KG/DOSE DAILY DAYS 1 TO 5)
     Route: 065
  9. MITOXANTRONE [Suspect]
     Active Substance: MITOXANTRONE HYDROCHLORIDE
     Indication: Acute myeloid leukaemia
     Dosage: UNK, QD (INDUCTION II: 0.4 MG/KG/DOSE DAILY DAYS 3 TO 6)
     Route: 065
  10. MITOXANTRONE [Suspect]
     Active Substance: MITOXANTRONE HYDROCHLORIDE
     Indication: Central nervous system leukaemia
  11. DAUNORUBICIN [Suspect]
     Active Substance: DAUNORUBICIN
     Indication: Acute myeloid leukaemia
     Dosage: 1.7 MG/KG/DOSE DAYS 1, 3, 5; INDUCTION 1
     Route: 065
  12. DAUNORUBICIN [Suspect]
     Active Substance: DAUNORUBICIN
     Indication: Central nervous system leukaemia

REACTIONS (3)
  - Pseudomonal sepsis [Unknown]
  - Drug ineffective [Unknown]
  - Off label use [Unknown]
